FAERS Safety Report 4805507-0 (Version None)
Quarter: 2005Q4

REPORT INFORMATION
  Report Type: 
  Country: None (occurrence: None)
  Receive Date: 20051018
  Receipt Date: 20051004
  Transmission Date: 20060501
  Serious: Yes (Other)
  Sender: FDA-Public Use
  Company Number: 0503-098

PATIENT
  Sex: Female
  Weight: 43.0917 kg

DRUGS (3)
  1. DUONEB [Suspect]
     Indication: ASTHMA
     Dosage: 1/2 VIAL - INHALATION
     Route: 055
     Dates: start: 20040401
  2. NORVASC [Concomitant]
  3. ASPIRIN [Concomitant]

REACTIONS (4)
  - ANGINA PECTORIS [None]
  - ANOREXIA [None]
  - CHEST PAIN [None]
  - HYPERTENSION [None]
